FAERS Safety Report 7487360-2 (Version None)
Quarter: 2011Q2

REPORT INFORMATION
  Report Type: 
  Country: None (occurrence: None)
  Receive Date: 20110518
  Receipt Date: 20110510
  Transmission Date: 20111010
  Serious: Yes (Other)
  Sender: FDA-Public Use
  Company Number: US-ROXANE LABORATORIES, INC.-2011-RO-00639RO

PATIENT
  Age: 46 Year
  Sex: Male

DRUGS (1)
  1. MORPHINE [Suspect]

REACTIONS (2)
  - SLEEP APNOEA SYNDROME [None]
  - APNOEA [None]
